FAERS Safety Report 20574367 (Version 1)
Quarter: 2022Q1

REPORT INFORMATION
  Report Type: Spontaneous
  Country: US (occurrence: US)
  Receive Date: 20220309
  Receipt Date: 20220309
  Transmission Date: 20220424
  Serious: Yes (Other)
  Sender: FDA-Public Use
  Company Number: US-SUNOVION-2022SUN000768

PATIENT
  Sex: Male

DRUGS (1)
  1. LATUDA [Suspect]
     Active Substance: LURASIDONE HYDROCHLORIDE
     Indication: Bipolar disorder
     Dosage: 40 MG, QD
     Route: 048

REACTIONS (6)
  - Tardive dyskinesia [Recovered/Resolved]
  - Dysstasia [Not Recovered/Not Resolved]
  - Discomfort [Unknown]
  - Dyskinesia [Unknown]
  - Akathisia [Unknown]
  - Hypokinesia [Not Recovered/Not Resolved]

NARRATIVE: CASE EVENT DATE: 20220226
